FAERS Safety Report 7207174-8 (Version None)
Quarter: 2011Q1

REPORT INFORMATION
  Report Type: 
  Country: None (occurrence: None)
  Receive Date: 20110103
  Receipt Date: 20101224
  Transmission Date: 20110831
  Serious: Yes (Other)
  Sender: FDA-Public Use
  Company Number: GB-ROCHE-742987

PATIENT
  Sex: Female
  Weight: 54 kg

DRUGS (3)
  1. HERCEPTIN [Suspect]
     Dosage: LOADING DOSE
     Route: 042
     Dates: start: 20090813, end: 20090813
  2. CITALOPRAM [Concomitant]
     Dosage: AT NIGHT
  3. HERCEPTIN [Suspect]
     Route: 042
     Dates: start: 20090902, end: 20090902

REACTIONS (3)
  - DIZZINESS [None]
  - BLOOD PRESSURE INCREASED [None]
  - PAIN [None]
